FAERS Safety Report 20215123 (Version 1)
Quarter: 2021Q4

REPORT INFORMATION
  Report Type: Spontaneous
  Country: US (occurrence: US)
  Receive Date: 20211222
  Receipt Date: 20211222
  Transmission Date: 20220303
  Serious: Yes (Death, Hospitalization)
  Sender: FDA-Public Use
  Company Number: US-JNJFOC-20211219333

PATIENT
  Age: 62 Year
  Sex: Female
  Weight: 79 kg

DRUGS (2)
  1. ACETAMINOPHEN [Suspect]
     Active Substance: ACETAMINOPHEN
     Indication: Suicide attempt
     Dosage: ACETAMINOPHEN 50000 MG IN ONE DAY
     Route: 048
     Dates: start: 20020928, end: 20020928
  2. PREVACID [Concomitant]
     Active Substance: LANSOPRAZOLE
     Indication: Product used for unknown indication
     Dosage: 30 MG/DAY
     Route: 065
     Dates: end: 20020928

REACTIONS (12)
  - Completed suicide [Fatal]
  - Pulmonary oedema [Fatal]
  - Supraventricular tachycardia [Fatal]
  - Supraventricular extrasystoles [Fatal]
  - Bradycardia [Fatal]
  - Splenic infarction [Fatal]
  - Colitis [Fatal]
  - Acute hepatic failure [Fatal]
  - Multiple organ dysfunction syndrome [Fatal]
  - Acute kidney injury [Fatal]
  - Gastrointestinal haemorrhage [Fatal]
  - Intentional overdose [Fatal]

NARRATIVE: CASE EVENT DATE: 20021003
